FAERS Safety Report 7544291-7 (Version None)
Quarter: 2011Q2

REPORT INFORMATION
  Report Type: 
  Country: None (occurrence: None)
  Receive Date: 20110613
  Receipt Date: 20070904
  Transmission Date: 20111010
  Serious: Yes (Other)
  Sender: FDA-Public Use
  Company Number: PHHO2007JP15269

PATIENT
  Sex: Female
  Weight: 79 kg

DRUGS (8)
  1. SIMVASTATIN [Concomitant]
     Dosage: UNK
  2. LANDEL [Concomitant]
     Dosage: UNK
  3. DOXAZOSIN MESYLATE [Concomitant]
     Dosage: UNK
  4. CONIEL [Concomitant]
     Dosage: UNK
  5. SELBEX [Concomitant]
     Dosage: UNK
  6. LIPITOR [Concomitant]
     Dosage: UNK
  7. DIOVAN [Suspect]
     Dosage: 160 MG, QD
     Route: 048
     Dates: start: 20060118
  8. DIOVAN [Suspect]
     Indication: HYPERTENSION
     Dosage: 80 MG, QD
     Route: 048
     Dates: start: 20030117, end: 20060117

REACTIONS (4)
  - PALPITATIONS [None]
  - VENTRICULAR EXTRASYSTOLES [None]
  - CHEST PAIN [None]
  - BLOOD PRESSURE INCREASED [None]
